FAERS Safety Report 18271983 (Version 2)
Quarter: 2020Q3

REPORT INFORMATION
  Report Type: Spontaneous
  Country: LT (occurrence: LT)
  Receive Date: 20200916
  Receipt Date: 20200929
  Transmission Date: 20201103
  Serious: Yes (Death, Hospitalization, Other)
  Sender: FDA-Public Use
  Company Number: NVSC2020LT217985

PATIENT
  Age: 9 Year
  Sex: Female
  Weight: 39.9 kg

DRUGS (12)
  1. METYRAPONE [Suspect]
     Active Substance: METYRAPONE
     Indication: HYPERADRENOCORTICISM
     Dosage: 3 DF, QD (INCREASED TO 3 TABLETS PER DAY)(TABLRET)
     Route: 048
     Dates: start: 20200728
  2. KEYTRUDA [Suspect]
     Active Substance: PEMBROLIZUMAB
     Dosage: 1 UNK, ONCE/SINGLE (3RD DOSE)
     Route: 042
     Dates: start: 20200818, end: 20200818
  3. METYRAPONE [Suspect]
     Active Substance: METYRAPONE
     Dosage: 10 DF, QD (INCREASED TO 10 TABLETS PER DAY)(TABLET)
     Route: 048
     Dates: start: 202008
  4. ONDANSETRON HYDROCHLORIDE. [Suspect]
     Active Substance: ONDANSETRON HYDROCHLORIDE
     Indication: PRODUCT USED FOR UNKNOWN INDICATION
     Dosage: 16 MG, QD (8 MILLIGRAM, TWICE A DAY)
     Route: 042
     Dates: start: 20200707, end: 20200707
  5. KEYTRUDA [Suspect]
     Active Substance: PEMBROLIZUMAB
     Dosage: 1 DF((3RD DOSE))
     Route: 042
     Dates: start: 20200728, end: 20200728
  6. SODIUM CHLORIDE. [Concomitant]
     Active Substance: SODIUM CHLORIDE
     Indication: PRODUCT USED FOR UNKNOWN INDICATION
     Dosage: 80 MG + 80 ML 0,9% NACL SOLUTION INTRAVENOUSLY OVER 30 MIN
     Route: 042
     Dates: start: 20200707, end: 20200707
  7. KETOCONAZOLE. [Suspect]
     Active Substance: KETOCONAZOLE
     Indication: CORTISOL INCREASED
     Dosage: UNK
     Route: 065
     Dates: start: 202008
  8. METYRAPONE [Suspect]
     Active Substance: METYRAPONE
     Dosage: 1 DF, QD (INCREASED TO 10 TABLETS PER DAY)
     Route: 048
     Dates: start: 202008
  9. KEYTRUDA [Suspect]
     Active Substance: PEMBROLIZUMAB
     Indication: ADRENOCORTICAL CARCINOMA
     Dosage: 80 MG (80 MG + 80 ML 0,9% NACL SOLUTION INTRAVENOUSLY/30 MIN)
     Route: 042
     Dates: start: 20200707
  10. TEMOZOLOMIDE. [Suspect]
     Active Substance: TEMOZOLOMIDE
     Indication: ADRENOCORTICAL CARCINOMA
     Dosage: 200 MG, QD (200 MG IN THE EVENING)
     Route: 048
     Dates: start: 20200707, end: 20200707
  11. METYRAPONE [Suspect]
     Active Substance: METYRAPONE
     Indication: CORTISOL INCREASED
     Dosage: UNK(TABLET)
     Route: 048
     Dates: start: 20200728
  12. KEYTRUDA [Suspect]
     Active Substance: PEMBROLIZUMAB
     Dosage: 1 DF, QD (2ND DOSE)
     Route: 042
     Dates: start: 20200728, end: 20200728

REACTIONS (21)
  - Blood lactate dehydrogenase abnormal [Unknown]
  - Pain [Not Recovered/Not Resolved]
  - Oedema peripheral [Not Recovered/Not Resolved]
  - Neutrophil percentage abnormal [Unknown]
  - Neutrophil count increased [Unknown]
  - Lymphocyte percentage abnormal [Unknown]
  - Neutrophil count abnormal [Unknown]
  - Malignant neoplasm progression [Not Recovered/Not Resolved]
  - Cortisol increased [Not Recovered/Not Resolved]
  - Blood testosterone increased [Not Recovered/Not Resolved]
  - Monocyte count abnormal [Unknown]
  - Platelet distribution width abnormal [Unknown]
  - Product use in unapproved indication [Unknown]
  - Mean cell volume abnormal [Unknown]
  - Red cell distribution width abnormal [Unknown]
  - Red blood cell abnormality [Unknown]
  - Therapy non-responder [Not Recovered/Not Resolved]
  - High density lipoprotein abnormal [Unknown]
  - Hyperhidrosis [Unknown]
  - Monocyte percentage abnormal [Unknown]
  - Death [Fatal]

NARRATIVE: CASE EVENT DATE: 2020
